FAERS Safety Report 8586520-7 (Version None)
Quarter: 2012Q3

REPORT INFORMATION
  Report Type: 
  Country: None (occurrence: None)
  Receive Date: 20120810
  Receipt Date: 20120731
  Transmission Date: 20120928
  Serious: Yes (Hospitalization, Other)
  Sender: FDA-Public Use
  Company Number: FR-JNJFOC-20120711406

PATIENT
  Age: 54 Year
  Sex: Female
  Weight: 74 kg

DRUGS (7)
  1. RISPERDAL [Suspect]
     Route: 048
     Dates: start: 20080101
  2. LOXAPINE HCL [Suspect]
     Route: 048
     Dates: start: 20120725
  3. EFFEXOR [Suspect]
     Route: 048
  4. EFFEXOR [Suspect]
     Indication: AFFECTIVE DISORDER
     Route: 048
     Dates: start: 20120612
  5. ANTIBIOTIC THERAPY [Suspect]
     Indication: PRODUCT USED FOR UNKNOWN INDICATION
     Route: 065
  6. RISPERDAL [Suspect]
     Indication: SCHIZOAFFECTIVE DISORDER
     Route: 048
     Dates: start: 20120612
  7. LOXAPINE HCL [Suspect]
     Indication: ANXIETY
     Dosage: AT 50, 50 AND 100
     Route: 048
     Dates: start: 20120612

REACTIONS (6)
  - BLOOD ALKALINE PHOSPHATASE INCREASED [None]
  - ERYSIPELAS [None]
  - PSYCHOTIC DISORDER [None]
  - GAMMA-GLUTAMYLTRANSFERASE INCREASED [None]
  - CYTOLYTIC HEPATITIS [None]
  - CHOLESTASIS [None]
